FAERS Safety Report 22158266 (Version 2)
Quarter: 2023Q2

REPORT INFORMATION
  Report Type: Report from Study
  Country: US (occurrence: US)
  Receive Date: 20230331
  Receipt Date: 20230428
  Transmission Date: 20230722
  Serious: No
  Sender: FDA-Public Use
  Company Number: US-ACADIA PHARMACEUTICALS INC.-ACA-2023-PIM-000746

PATIENT
  Age: 59 Year
  Sex: Female

DRUGS (28)
  1. NUPLAZID [Suspect]
     Active Substance: PIMAVANSERIN TARTRATE
     Indication: Parkinson^s disease psychosis
     Dosage: 34 MILLIGRAM, QD
     Route: 048
     Dates: start: 20230208, end: 202302
  2. NUPLAZID [Suspect]
     Active Substance: PIMAVANSERIN TARTRATE
     Indication: Hallucination
     Dosage: 34 MILLIGRAM, QD
     Route: 048
     Dates: start: 20230213, end: 20230404
  3. NUPLAZID [Suspect]
     Active Substance: PIMAVANSERIN TARTRATE
     Indication: Delusion
  4. TRIHEXYPHENIDYL [Suspect]
     Active Substance: TRIHEXYPHENIDYL
     Dosage: 2 MILLIGRAM
  5. SEROQUEL [Suspect]
     Active Substance: QUETIAPINE FUMARATE
  6. LAMICTAL [Concomitant]
     Active Substance: LAMOTRIGINE
  7. DICLOFENAC [Concomitant]
     Active Substance: DICLOFENAC
     Dosage: 1 PERCENT, S
  8. LITHIUM [Concomitant]
     Active Substance: LITHIUM
  9. ALBUTEROL [Concomitant]
     Active Substance: ALBUTEROL
  10. COLACE [Concomitant]
     Active Substance: DOCUSATE SODIUM
  11. LACTULOSE [Concomitant]
     Active Substance: LACTULOSE
  12. VITAMIN D NOS [Concomitant]
     Active Substance: VITAMIN D NOS
  13. ACETAMINOPHEN [Concomitant]
     Active Substance: ACETAMINOPHEN
  14. HYDROCODONE [Concomitant]
     Active Substance: HYDROCODONE
  15. PALIPERIDONE [Concomitant]
     Active Substance: PALIPERIDONE
     Dosage: 6 MILLIGRAM, TB2
  16. OXYBUTYNIN [Concomitant]
     Active Substance: OXYBUTYNIN
  17. MYRBETRIQ [Concomitant]
     Active Substance: MIRABEGRON
  18. METOPROLOL [Concomitant]
     Active Substance: METOPROLOL
  19. LEVOTHYROXINE [Concomitant]
     Active Substance: LEVOTHYROXINE
     Dosage: 25 MICROGRAM
  20. DOXYCYCLINE [Concomitant]
     Active Substance: DOXYCYCLINE
  21. VITAFUSION FIBER WELL [Concomitant]
     Dosage: 2 GRAM, CHE GUMMIES
  22. BIOTIN [Concomitant]
     Active Substance: BIOTIN
     Dosage: 1000 MICROGRAM,CHE
  23. FAMOTIDINE [Concomitant]
     Active Substance: FAMOTIDINE
     Dosage: 40 MILLIGRAM
  24. VITAMIN B COMPLEX [Concomitant]
     Active Substance: CYANOCOBALAMIN\DEXPANTHENOL\NIACINAMIDE\PYRIDOXINE HYDROCHLORIDE\RIBOFLAVIN 5^-PHOSPHATE SODIUM\THIA
  25. HYDROCORTISONE [Concomitant]
     Active Substance: HYDROCORTISONE
     Dosage: 2.5 PERCENT
  26. CONSTULOSE [Concomitant]
     Active Substance: LACTULOSE
     Dosage: 10GM/15ML
  27. LIDOCAINE [Concomitant]
     Active Substance: LIDOCAINE
     Dosage: 4 PERCENT, PTC
  28. FIBER [Concomitant]
     Dosage: CHE 2GM

REACTIONS (7)
  - Therapeutic product effect incomplete [Not Recovered/Not Resolved]
  - Balance disorder [Not Recovered/Not Resolved]
  - Bipolar disorder [Not Recovered/Not Resolved]
  - Back pain [Not Recovered/Not Resolved]
  - Product dose omission issue [Not Recovered/Not Resolved]
  - Hallucination [Not Recovered/Not Resolved]
  - Peripheral swelling [Unknown]

NARRATIVE: CASE EVENT DATE: 20220919
